FAERS Safety Report 25116051 (Version 3)
Quarter: 2025Q2

REPORT INFORMATION
  Report Type: Spontaneous
  Country: US (occurrence: US)
  Receive Date: 20250325
  Receipt Date: 20250424
  Transmission Date: 20250716
  Serious: No
  Sender: VIIV
  Company Number: US-VIIV HEALTHCARE-US2025032153

PATIENT
  Age: 69 Year
  Sex: Male
  Weight: 66.9 kg

DRUGS (1)
  1. TRIUMEQ [Suspect]
     Active Substance: ABACAVIR SULFATE\DOLUTEGRAVIR SODIUM\LAMIVUDINE
     Indication: HIV carrier

REACTIONS (5)
  - Coronary artery disease [Not Recovered/Not Resolved]
  - Blood calcium increased [Not Recovered/Not Resolved]
  - Influenza [Not Recovered/Not Resolved]
  - Fear of disease [Unknown]
  - Sneezing [Unknown]

NARRATIVE: CASE EVENT DATE: 20250301
